FAERS Safety Report 7033203-0 (Version None)
Quarter: 2010Q4

REPORT INFORMATION
  Report Type: 
  Country: None (occurrence: None)
  Receive Date: 20101007
  Receipt Date: 20100924
  Transmission Date: 20110411
  Serious: Yes (Other)
  Sender: FDA-Public Use
  Company Number: US-ROCHE-730906

PATIENT
  Sex: Male
  Weight: 79.5 kg

DRUGS (6)
  1. BONIVA [Suspect]
     Indication: OSTEOPOROSIS
     Route: 048
  2. CIALIS [Concomitant]
  3. NEXIUM [Concomitant]
  4. AVONEX [Concomitant]
  5. LUNESTA [Concomitant]
  6. BUPROPION [Concomitant]

REACTIONS (1)
  - COELIAC DISEASE [None]
